FAERS Safety Report 14017318 (Version 1)
Quarter: 2017Q3

REPORT INFORMATION
  Report Type: Spontaneous
  Country: CZ (occurrence: CZ)
  Receive Date: 20170927
  Receipt Date: 20170927
  Transmission Date: 20171128
  Serious: Yes (Hospitalization, Other)
  Sender: FDA-Public Use
  Company Number: PHHY2017CZ139366

PATIENT
  Sex: Female

DRUGS (4)
  1. DEGAN [Suspect]
     Active Substance: METOCLOPRAMIDE HYDROCHLORIDE
     Indication: GASTROENTERITIS
     Dosage: 10 MG, TID
     Route: 042
  2. DEGAN [Suspect]
     Active Substance: METOCLOPRAMIDE HYDROCHLORIDE
     Indication: NAUSEA
  3. DEGAN [Suspect]
     Active Substance: METOCLOPRAMIDE HYDROCHLORIDE
     Indication: GASTROENTERITIS
     Route: 065
  4. DEGAN [Suspect]
     Active Substance: METOCLOPRAMIDE HYDROCHLORIDE
     Indication: NAUSEA

REACTIONS (13)
  - Psychomotor retardation [Recovered/Resolved]
  - Movement disorder [Recovered/Resolved]
  - Parkinsonism [Recovered/Resolved]
  - Musculoskeletal stiffness [Recovered/Resolved]
  - Reduced facial expression [Recovered/Resolved]
  - Insomnia related to another mental condition [Recovered/Resolved]
  - Presyncope [Recovered/Resolved]
  - Somnolence [Recovered/Resolved]
  - Extrapyramidal disorder [Recovered/Resolved]
  - Tremor [Recovered/Resolved]
  - Fatigue [Recovered/Resolved]
  - Depression [Recovered/Resolved]
  - Confusional state [Recovered/Resolved]
